FAERS Safety Report 15270618 (Version 2)
Quarter: 2018Q3

REPORT INFORMATION
  Report Type: Report from Study
  Country: US (occurrence: US)
  Receive Date: 20180813
  Receipt Date: 20180911
  Transmission Date: 20181010
  Serious: Yes (Death, Other)
  Sender: FDA-Public Use
  Company Number: US-GILEAD-2018-0350113

PATIENT
  Age: 60 Year
  Sex: Female

DRUGS (4)
  1. AMBRISENTAN [Suspect]
     Active Substance: AMBRISENTAN
     Indication: PULMONARY ARTERIAL HYPERTENSION
     Dosage: 5 MG, QD
     Route: 065
     Dates: start: 20180706
  2. AMBRISENTAN [Suspect]
     Active Substance: AMBRISENTAN
     Indication: SCLERODERMA
  3. ADCIRCA [Concomitant]
     Active Substance: TADALAFIL
  4. ELIQUIS [Concomitant]
     Active Substance: APIXABAN

REACTIONS (7)
  - Systemic scleroderma [Fatal]
  - Scleroderma [Fatal]
  - Septic shock [Fatal]
  - Acute kidney injury [Fatal]
  - Urinary tract infection [Fatal]
  - Cardiogenic shock [Fatal]
  - Escherichia bacteraemia [Fatal]
